FAERS Safety Report 17721872 (Version 2)
Quarter: 2020Q2

REPORT INFORMATION
  Report Type: Spontaneous
  Country: FR (occurrence: FR)
  Receive Date: 20200429
  Receipt Date: 20200625
  Transmission Date: 20200714
  Serious: Yes (Other)
  Sender: FDA-Public Use
  Company Number: FR-TEVA-2020-FR-1229796

PATIENT
  Age: 54 Year
  Sex: Female
  Weight: 87 kg

DRUGS (5)
  1. PROPRANOLOL TEVA LP 160 MG [Suspect]
     Active Substance: PROPRANOLOL HYDROCHLORIDE
     Indication: TACHYCARDIA
     Dosage: 160 MILLIGRAM DAILY; IN THE EVENING, STARTED APPROXIMATELY TWO YEARS EARLIER
     Route: 065
     Dates: start: 20110103, end: 20200212
  2. RELPAX [Concomitant]
     Active Substance: ELETRIPTAN HYDROBROMIDE
     Dates: start: 201006
  3. LAROXYL [Concomitant]
     Active Substance: AMITRIPTYLINE HYDROCHLORIDE
     Dosage: 10 DROPS
     Dates: start: 201009
  4. LYSANXIA [Concomitant]
     Active Substance: PRAZEPAM
     Dosage: 10 MG
     Dates: start: 201009
  5. PROPRANOLOL TEVA LP 160 MG [Suspect]
     Active Substance: PROPRANOLOL HYDROCHLORIDE
     Indication: MIGRAINE

REACTIONS (7)
  - Allergic reaction to excipient [Unknown]
  - Product substitution issue [Unknown]
  - Oesophagitis [Unknown]
  - Choking sensation [Recovered/Resolved]
  - Gastrointestinal fungal infection [Unknown]
  - Wrong technique in product usage process [Unknown]
  - Dyspnoea [Recovered/Resolved]

NARRATIVE: CASE EVENT DATE: 2019
